FAERS Safety Report 9983798 (Version 3)
Quarter: 2015Q2

REPORT INFORMATION
  Report Type: Spontaneous
  Country: US (occurrence: US)
  Receive Date: 20140307
  Receipt Date: 20150618
  Transmission Date: 20150821
  Serious: Yes (Hospitalization, Disabling, Other)
  Sender: FDA-Public Use
  Company Number: US-009507513-1403USA000630

PATIENT
  Sex: Female

DRUGS (2)
  1. FOSAMAX [Suspect]
     Active Substance: ALENDRONATE SODIUM
     Indication: OSTEOPOROSIS PROPHYLAXIS
     Dosage: 70 MG, QW
     Route: 048
     Dates: start: 2000, end: 2008
  2. PRILOSEC [Concomitant]
     Active Substance: OMEPRAZOLE MAGNESIUM
     Dosage: UNK
     Dates: start: 1990

REACTIONS (18)
  - Femur fracture [Unknown]
  - Surgery [Unknown]
  - Necrosis [Unknown]
  - Femur fracture [Unknown]
  - Impaired healing [Unknown]
  - Hip arthroplasty [Unknown]
  - Medical device implantation [Unknown]
  - Anxiety [Unknown]
  - Knee arthroplasty [Unknown]
  - Hypertension [Unknown]
  - Femur fracture [Unknown]
  - Femur fracture [Unknown]
  - Muscle strain [Unknown]
  - Surgery [Unknown]
  - Fracture nonunion [Unknown]
  - Depression [Unknown]
  - Intramedullary rod insertion [Unknown]
  - Surgery [Unknown]

NARRATIVE: CASE EVENT DATE: 200303
